FAERS Safety Report 7488276-8 (Version None)
Quarter: 2011Q2

REPORT INFORMATION
  Report Type: 
  Country: None (occurrence: None)
  Receive Date: 20110511
  Receipt Date: 20110504
  Transmission Date: 20111010
  Serious: Yes (Hospitalization, Other)
  Sender: FDA-Public Use
  Company Number: ACO_23821_2011

PATIENT
  Age: 46 Year
  Sex: Female

DRUGS (6)
  1. ADVIL (MEFENAMIC ACID) [Concomitant]
  2. BACLOFEN [Concomitant]
  3. OXYCODONE HCL [Concomitant]
  4. AMPYRA [Suspect]
     Indication: PRODUCT USED FOR UNKNOWN INDICATION
     Dosage: 10 MG , BID
     Dates: start: 20100601
  5. PROVIGIL [Concomitant]
  6. NEURONTIN [Concomitant]

REACTIONS (1)
  - GRAND MAL CONVULSION [None]
